FAERS Safety Report 9716799 (Version 1)
Quarter: 2013Q4

REPORT INFORMATION
  Report Type: Spontaneous
  Country: BR (occurrence: None)
  Receive Date: 20131125
  Receipt Date: 20131125
  Transmission Date: 20140711
  Serious: Yes (Other)
  Sender: FDA-Public Use
  Company Number: BR-TORRENT-00001828

PATIENT
  Age: 69 Year
  Sex: Female

DRUGS (1)
  1. ESPRAN (INN:ESCITALOPRAM OXALATE) [Suspect]
     Indication: DEPRESSION
     Dosage: ONCE DAILY/ORAL
     Route: 048
     Dates: start: 201307

REACTIONS (2)
  - Tremor [None]
  - Hemiparesis [None]
